FAERS Safety Report 13327088 (Version 1)
Quarter: 2017Q1

REPORT INFORMATION
  Report Type: Report from Study
  Country: BE (occurrence: BE)
  Receive Date: 20170313
  Receipt Date: 20170313
  Transmission Date: 20170428
  Serious: Yes (Hospitalization, Other)
  Sender: FDA-Public Use
  Company Number: BE-ROCHE-1639391

PATIENT
  Sex: Female

DRUGS (3)
  1. PACLITAXEL. [Suspect]
     Active Substance: PACLITAXEL
     Indication: HER-2 POSITIVE BREAST CANCER
     Dosage: WEEKLY FOR 3/4 WEEKS.
     Route: 042
  2. TRASTUZUMAB [Suspect]
     Active Substance: TRASTUZUMAB
     Indication: HER-2 POSITIVE BREAST CANCER
     Route: 042
  3. TRASTUZUMAB [Suspect]
     Active Substance: TRASTUZUMAB
     Route: 042

REACTIONS (32)
  - Oedema peripheral [Unknown]
  - Dyspnoea [Unknown]
  - Neuropathy peripheral [Unknown]
  - Pyrexia [Unknown]
  - Hypokalaemia [Unknown]
  - Hypoaesthesia [Unknown]
  - Cardiac failure [Unknown]
  - Rash [Unknown]
  - Alopecia [Unknown]
  - Nausea [Unknown]
  - Headache [Unknown]
  - Ejection fraction decreased [Unknown]
  - Anaemia [Unknown]
  - Asthenia [Unknown]
  - Weight decreased [Unknown]
  - Aspartate aminotransferase increased [Unknown]
  - Fatigue [Unknown]
  - Dizziness [Unknown]
  - Left ventricular dysfunction [Unknown]
  - Neutropenia [Unknown]
  - Back pain [Unknown]
  - Arthralgia [Unknown]
  - Insomnia [Unknown]
  - Cough [Unknown]
  - Cardiac disorder [Unknown]
  - Leukopenia [Unknown]
  - Diarrhoea [Unknown]
  - Vomiting [Unknown]
  - Peripheral sensory neuropathy [Unknown]
  - Alanine aminotransferase increased [Unknown]
  - Decreased appetite [Unknown]
  - Lymphopenia [Unknown]
